FAERS Safety Report 4808273-8 (Version None)
Quarter: 2005Q4

REPORT INFORMATION
  Report Type: 
  Country: None (occurrence: None)
  Receive Date: 20051021
  Receipt Date: 20051021
  Transmission Date: 20060501
  Serious: Yes (Other)
  Sender: FDA-Public Use
  Company Number: None

PATIENT
  Sex: Female
  Weight: 152.4086 kg

DRUGS (5)
  1. DAPTOMYCIN [Suspect]
     Indication: CELLULITIS ENTEROCOCCAL
     Dosage: ONE GRAM IV Q 24 HR
     Route: 042
     Dates: start: 20051004, end: 20051010
  2. DAPTOMYCIN [Suspect]
     Indication: POSTOPERATIVE INFECTION
     Dosage: ONE GRAM IV Q 24 HR
     Route: 042
     Dates: start: 20051004, end: 20051010
  3. HYDROCHLOROTHIAZIDE [Concomitant]
  4. ATENOLOL [Concomitant]
  5. NASAREL NASAL SPRAY [Concomitant]

REACTIONS (2)
  - BLOOD CREATINE PHOSPHOKINASE INCREASED [None]
  - MYALGIA [None]
